FAERS Safety Report 23841356 (Version 2)
Quarter: 2024Q4

REPORT INFORMATION
  Report Type: Spontaneous
  Country: US (occurrence: US)
  Receive Date: 20240510
  Receipt Date: 20241104
  Transmission Date: 20250114
  Serious: No
  Sender: BRISTOL-MYERS SQUIBB COMPANY
  Company Number: US-BRISTOL-MYERS SQUIBB COMPANY-2024-071612

PATIENT
  Age: 78 Year
  Sex: Male
  Weight: 80.74 kg

DRUGS (1)
  1. REVLIMID [Suspect]
     Active Substance: LENALIDOMIDE
     Indication: Plasma cell myeloma
     Dosage: FREQUENCY: EVERY 2 DAYS FOR 28 DAYS
     Route: 048

REACTIONS (5)
  - Diarrhoea [Unknown]
  - Constipation [Unknown]
  - Chest pain [Unknown]
  - Pain in extremity [Unknown]
  - Off label use [Unknown]
